FAERS Safety Report 8614967-9 (Version None)
Quarter: 2012Q3

REPORT INFORMATION
  Report Type: 
  Country: None (occurrence: None)
  Receive Date: 20120809
  Receipt Date: 20120725
  Transmission Date: 20120928
  Serious: Yes (Death, Other)
  Sender: FDA-Public Use
  Company Number: 2012MA009104

PATIENT
  Age: 27 Year
  Sex: Female

DRUGS (3)
  1. KADIAN [Suspect]
     Dosage: ; PARN
     Route: 051
  2. DIPHENHYDRAMINE HYDROCHLORIDE [Suspect]
  3. CITALOPRAM HYDROBROMIDE [Suspect]

REACTIONS (3)
  - UNRESPONSIVE TO STIMULI [None]
  - INTENTIONAL DRUG MISUSE [None]
  - TOXICITY TO VARIOUS AGENTS [None]
